FAERS Safety Report 8773892 (Version 1)
Quarter: 2012Q4

REPORT INFORMATION
  Report Type: 
  Country: AR (occurrence: AR)
  Receive Date: 20120907
  Receipt Date: 20120907
  Transmission Date: 20130627
  Serious: Yes (Other)
  Sender: FDA-Public Use
  Company Number: AR-GLAXOSMITHKLINE-A0992413A

PATIENT
  Age: 32 Year
  Sex: Male

DRUGS (6)
  1. ARZERRA [Suspect]
     Indication: B-CELL LYMPHOMA
     Dosage: 300MG Unknown
     Route: 065
  2. RITUXIMAB [Concomitant]
     Indication: B-CELL LYMPHOMA
  3. PREDNISOLONE [Concomitant]
  4. PARACETAMOL [Concomitant]
  5. CETIRIZINE [Concomitant]
  6. CHEMOTHERAPY [Concomitant]

REACTIONS (5)
  - Infusion related reaction [Recovered/Resolved]
  - Stridor [Recovered/Resolved]
  - Rash [Recovered/Resolved]
  - Tachycardia [Recovered/Resolved]
  - Dyspnoea [Recovered/Resolved]
